FAERS Safety Report 21637746 (Version 1)
Quarter: 2022Q4

REPORT INFORMATION
  Report Type: Spontaneous
  Country: US (occurrence: US)
  Receive Date: 20221124
  Receipt Date: 20221124
  Transmission Date: 20230112
  Serious: Yes (Other)
  Sender: FDA-Public Use
  Company Number: US-SA-SAC20221121001618

PATIENT
  Age: 51 Year
  Sex: Female

DRUGS (2)
  1. LEMTRADA [Suspect]
     Active Substance: ALEMTUZUMAB
     Indication: Multiple sclerosis
     Dosage: UNK
     Dates: start: 201912, end: 201912
  2. LEMTRADA [Suspect]
     Active Substance: ALEMTUZUMAB
     Dosage: UNK
     Dates: start: 202101, end: 202101

REACTIONS (7)
  - Seizure [Unknown]
  - Renal cell carcinoma stage I [Unknown]
  - Flank pain [Unknown]
  - Renal mass [Unknown]
  - Cholecystectomy [Unknown]
  - Thyroid disorder [Unknown]
  - Anxiety [Unknown]
